FAERS Safety Report 22060791 (Version 1)
Quarter: 2023Q1

REPORT INFORMATION
  Report Type: Spontaneous
  Country: US (occurrence: US)
  Receive Date: 20230303
  Receipt Date: 20230303
  Transmission Date: 20230418
  Serious: Yes (Other)
  Sender: FDA-Public Use
  Company Number: US-SA-SAC20230303000258

PATIENT
  Sex: Female

DRUGS (1)
  1. DUPIXENT [Suspect]
     Active Substance: DUPILUMAB
     Indication: Dermatitis atopic
     Dosage: 300 MG, QOW
     Route: 058
     Dates: start: 202007

REACTIONS (7)
  - Autoimmune disorder [Unknown]
  - Illness [Unknown]
  - Inflammation [Unknown]
  - Pharyngeal swelling [Unknown]
  - Abdominal discomfort [Unknown]
  - Purulence [Unknown]
  - Nasopharyngitis [Unknown]
